FAERS Safety Report 8136262 (Version 7)
Quarter: 2013Q2

REPORT INFORMATION
  Report Type: Report from Study
  Country: GB (occurrence: GB)
  Receive Date: 20110914
  Receipt Date: 20130501
  Transmission Date: 20140414
  Serious: Yes (Death, Hospitalization)
  Sender: FDA-Public Use
  Company Number: PHHO2011GB15065

PATIENT
  Age: 85 Year
  Sex: Male
  Weight: 78 kg

DRUGS (18)
  1. FUROSEMIDE [Suspect]
     Dosage: 40 MG, QD
     Route: 048
     Dates: start: 20110822, end: 20110905
  2. FUROSEMIDE [Suspect]
     Dosage: 40 MG, BID
     Route: 048
     Dates: start: 20110922
  3. RANIBIZUMAB [Suspect]
     Indication: DIABETIC RETINAL OEDEMA
     Dosage: 0.5 MG, UNK
     Dates: start: 20110527, end: 20110527
  4. RANIBIZUMAB [Suspect]
     Dosage: UNK
     Dates: start: 20110805, end: 20110805
  5. RANIBIZUMAB [Suspect]
     Dosage: UNK
     Dates: start: 20110902, end: 20110902
  6. RANIBIZUMAB [Suspect]
     Dosage: 0.5 ML, UNK
     Dates: start: 20120706, end: 20120706
  7. LANTUS [Concomitant]
     Indication: DIABETES MELLITUS
     Dosage: 20 U, QD
     Dates: start: 20090123
  8. METFORMIN [Concomitant]
     Indication: DIABETES MELLITUS
     Dosage: UNK
     Dates: start: 20010103
  9. AMLODIPINE [Concomitant]
     Indication: HYPERTENSION
     Dosage: UNK
     Dates: start: 20010125
  10. SIMVASTATIN [Concomitant]
     Indication: HYPERLIPIDAEMIA
     Dosage: QD
     Route: 048
     Dates: start: 20061025
  11. BISOPROLOL [Concomitant]
     Indication: HYPERTENSION
     Dosage: UNK
     Dates: start: 20100728
  12. GLICLAZIDE [Concomitant]
     Dosage: 160 MG, QD
     Route: 048
  13. DOXAZOSIN [Concomitant]
     Indication: HYPERTENSION
     Dosage: 4 MG, BID
     Route: 048
     Dates: start: 20110920
  14. RANITIDINE [Concomitant]
     Dosage: 300 MG, BID
     Route: 048
     Dates: start: 20121002
  15. HYDROXYZINE [Concomitant]
     Dosage: 25 MG, BID
     Route: 048
     Dates: start: 20121217
  16. SPIRONOLACTONE [Concomitant]
     Dosage: 12.5 MG, QD
     Route: 048
     Dates: start: 20120131
  17. EURAX [Concomitant]
     Dosage: BD APPLICATION
     Dates: start: 20121224
  18. CLOPIDOGREL [Concomitant]
     Dosage: 75 MG, QD
     Route: 048
     Dates: start: 20120308

REACTIONS (4)
  - Renal impairment [Recovering/Resolving]
  - Cardiac failure [Recovering/Resolving]
  - Renal failure chronic [Fatal]
  - Gait disturbance [Recovering/Resolving]
